FAERS Safety Report 8555628-4 (Version None)
Quarter: 2012Q3

REPORT INFORMATION
  Report Type: 
  Country: None (occurrence: None)
  Receive Date: 20120731
  Receipt Date: 20120419
  Transmission Date: 20120928
  Serious: Yes (Other)
  Sender: FDA-Public Use
  Company Number: PE-ELI_LILLY_AND_COMPANY-PE201207009216

PATIENT
  Age: 32 Year
  Sex: Female

DRUGS (1)
  1. PROZAC [Suspect]
     Dosage: 20 MG, UNK

REACTIONS (2)
  - LEIOMYOMA [None]
  - VAGINAL HAEMORRHAGE [None]
